FAERS Safety Report 12648155 (Version 12)
Quarter: 2020Q4

REPORT INFORMATION
  Report Type: Report from Study
  Country: US (occurrence: US)
  Receive Date: 20160812
  Receipt Date: 20201207
  Transmission Date: 20210113
  Serious: Yes (Hospitalization, Other)
  Sender: FDA-Public Use
  Company Number: US-SA-2016SA072055

PATIENT

DRUGS (15)
  1. ZENPEP [Concomitant]
     Active Substance: PANCRELIPASE AMYLASE\PANCRELIPASE LIPASE\PANCRELIPASE PROTEASE
     Dosage: 2 DF, WITH MEALS
     Route: 065
  2. VANDETANIB. [Suspect]
     Active Substance: VANDETANIB
     Dosage: 100MG DAILY FOR 6 DAYS A WEEK, AND 200MG FOR 1 DAY A WEEK
     Route: 048
     Dates: start: 20120704
  3. K-DUR [Concomitant]
     Active Substance: POTASSIUM CHLORIDE
     Dosage: 40 MEQ, BID
     Route: 065
  4. ERGOCALCIFEROL. [Concomitant]
     Active Substance: ERGOCALCIFEROL
     Dosage: UNK
     Route: 048
  5. MAGNESIUM GLUCONATE [Concomitant]
     Active Substance: MAGNESIUM GLUCONATE
     Dosage: 200 MG, QD
     Route: 065
  6. VANDETANIB. [Suspect]
     Active Substance: VANDETANIB
     Dosage: 100 MGQD
     Route: 048
     Dates: start: 20120705
  7. SYNTHROID [Concomitant]
     Active Substance: LEVOTHYROXINE SODIUM
     Indication: HYPOTHYROIDISM
     Dosage: 88 UG, QD
     Route: 048
  8. HCTZ [Concomitant]
     Active Substance: HYDROCHLOROTHIAZIDE
     Dosage: 25 MG, BID
     Route: 065
  9. VANDETANIB. [Suspect]
     Active Substance: VANDETANIB
     Indication: THYROID CANCER
     Dosage: 100MG DAILY FOR 6 DAYS, 200MG DAILY FOR ONE WEEK
     Route: 048
     Dates: start: 20120702
  10. VANDETANIB. [Suspect]
     Active Substance: VANDETANIB
     Dosage: 200 MG , QOD
     Route: 048
     Dates: start: 20120705
  11. VANDETANIB. [Suspect]
     Active Substance: VANDETANIB
     Dosage: UNK UNK,QD
     Route: 048
     Dates: start: 20120705
  12. CALCIUM [Concomitant]
     Active Substance: CALCIUM
     Indication: BLOOD CALCIUM DECREASED
     Dosage: 1200 MG, AM
     Route: 048
  13. IMODIUM [Concomitant]
     Active Substance: LOPERAMIDE HYDROCHLORIDE
     Indication: DIARRHOEA
     Dosage: 12 MG, WITH MEALS
     Route: 048
  14. VANDETANIB. [Suspect]
     Active Substance: VANDETANIB
     Dosage: UNK UNK,QD
     Route: 048
     Dates: start: 20120705
  15. CALCIUM [Concomitant]
     Active Substance: CALCIUM
     Dosage: 600 MG, PM
     Route: 065

REACTIONS (26)
  - Skin discolouration [Unknown]
  - Ear congestion [Unknown]
  - Headache [Not Recovered/Not Resolved]
  - Blood pressure abnormal [Unknown]
  - Nausea [Recovered/Resolved]
  - Vomiting [Recovered/Resolved]
  - Blood electrolytes decreased [Unknown]
  - Tumour lysis syndrome [Recovered/Resolved]
  - Constipation [Recovered/Resolved]
  - Tooth disorder [Unknown]
  - Hypocalcaemia [Unknown]
  - Dyspnoea [Unknown]
  - Calcium metabolism disorder [Unknown]
  - Hypoglycaemia [Unknown]
  - Muscle spasms [Unknown]
  - Diarrhoea [Not Recovered/Not Resolved]
  - Blood pressure increased [Unknown]
  - Epistaxis [Not Recovered/Not Resolved]
  - Blood thyroid stimulating hormone increased [Unknown]
  - Hypotension [Unknown]
  - Blood calcium increased [Unknown]
  - Joint swelling [Unknown]
  - Rash [Not Recovered/Not Resolved]
  - Blood calcium abnormal [Unknown]
  - Capillary disorder [Unknown]
  - Adverse drug reaction [Unknown]

NARRATIVE: CASE EVENT DATE: 20120707
